FAERS Safety Report 23024304 (Version 1)
Quarter: 2023Q4

REPORT INFORMATION
  Report Type: Spontaneous
  Country: FR (occurrence: FR)
  Receive Date: 20231004
  Receipt Date: 20231004
  Transmission Date: 20240110
  Serious: Yes (Other)
  Sender: FDA-Public Use
  Company Number: FR-AFSSAPS-NY2023001304

PATIENT
  Age: 22 Year
  Sex: Female
  Weight: 58 kg

DRUGS (1)
  1. FLUOXETINE [Suspect]
     Active Substance: FLUOXETINE HYDROCHLORIDE
     Indication: Depression
     Dosage: 20 MILLIGRAM, ONCE A DAY
     Route: 048
     Dates: start: 20230908

REACTIONS (2)
  - Micturition disorder [Not Recovered/Not Resolved]
  - Persistent genital arousal disorder [Not Recovered/Not Resolved]

NARRATIVE: CASE EVENT DATE: 20230909
